FAERS Safety Report 10270030 (Version 1)
Quarter: 2014Q2

REPORT INFORMATION
  Report Type: Spontaneous
  Country: US (occurrence: None)
  Receive Date: 20140626
  Receipt Date: 20140626
  Transmission Date: 20141212
  Serious: Yes (Death)
  Sender: FDA-Public Use
  Company Number: US-000873

PATIENT
  Age: 36 Year
  Sex: Male

DRUGS (2)
  1. GATTEX [Suspect]
     Indication: SHORT-BOWEL SYNDROME
     Dosage: 0.32 ML QD, STREN/VOLUM 0.32 ML[FREQU: DAILY INJECTION SUBCUTANEOUS
     Route: 058
     Dates: start: 20131104
  2. SOLUTIONS FOR PARENTERAL NUTRITION [Concomitant]

REACTIONS (2)
  - Injection site haemorrhage [None]
  - Colon cancer recurrent [None]
